FAERS Safety Report 7435687-2 (Version None)
Quarter: 2011Q2

REPORT INFORMATION
  Report Type: 
  Country: None (occurrence: None)
  Receive Date: 20110425
  Receipt Date: 20110412
  Transmission Date: 20111010
  Serious: Yes (Hospitalization)
  Sender: FDA-Public Use
  Company Number: PHHY2011DK30848

PATIENT
  Sex: Male

DRUGS (6)
  1. DICLOFENAC [Concomitant]
  2. TRADOLAN [Concomitant]
  3. PANTOPRAZOLE [Concomitant]
  4. METHOTREXATE [Suspect]
     Dosage: 12.5 MG, QW
     Route: 048
     Dates: start: 20020101, end: 20050509
  5. PINEX [Concomitant]
  6. FOLIMET [Concomitant]

REACTIONS (9)
  - PAIN [None]
  - NIGHT SWEATS [None]
  - PULMONARY TUBERCULOSIS [None]
  - DYSPNOEA [None]
  - ARTHRITIS [None]
  - SKIN REACTION [None]
  - PLEURAL EFFUSION [None]
  - COUGH [None]
  - PHOTOSENSITIVITY REACTION [None]
